FAERS Safety Report 5920796-7 (Version None)
Quarter: 2008Q4

REPORT INFORMATION
  Report Type: 
  Country: None (occurrence: None)
  Receive Date: 20081016
  Receipt Date: 20081006
  Transmission Date: 20090506
  Serious: No
  Sender: FDA-Public Use
  Company Number: US-BAYER-200833955NA

PATIENT
  Sex: Male

DRUGS (4)
  1. BETASERON [Suspect]
     Indication: MULTIPLE SCLEROSIS
  2. COPAXONE (GLATIRAMER) [Concomitant]
  3. AVONEX [Concomitant]
  4. MIGRAINE MEDICATION [Concomitant]
     Indication: MIGRAINE

REACTIONS (1)
  - NO ADVERSE EVENT [None]
